FAERS Safety Report 9213964 (Version 5)
Quarter: 2013Q3

REPORT INFORMATION
  Report Type: Report from Study
  Country: CN (occurrence: CN)
  Receive Date: 20130405
  Receipt Date: 20130726
  Transmission Date: 20140515
  Serious: Yes (Hospitalization, Disabling)
  Sender: FDA-Public Use
  Company Number: CN-ABBOTT-13P-035-1069628-00

PATIENT
  Age: 47 Year
  Sex: Female
  Weight: 59 kg

DRUGS (1)
  1. HUMIRA [Suspect]
     Indication: PSORIASIS
     Route: 058
     Dates: start: 20121015, end: 20130325

REACTIONS (2)
  - Arthralgia [Not Recovered/Not Resolved]
  - Intervertebral disc protrusion [Not Recovered/Not Resolved]
